FAERS Safety Report 7773080-3 (Version None)
Quarter: 2011Q3

REPORT INFORMATION
  Report Type: 
  Country: None (occurrence: None)
  Receive Date: 20110922
  Receipt Date: 20110915
  Transmission Date: 20111222
  Serious: Yes (Other)
  Sender: FDA-Public Use
  Company Number: US-NOVOPROD-335172

PATIENT
  Sex: Male

DRUGS (2)
  1. VICTOZA [Suspect]
     Dosage: 1.8 MG, QD
     Route: 058
  2. VICTOZA [Suspect]
     Indication: TYPE 2 DIABETES MELLITUS
     Dosage: 1.2 MG, QD
     Route: 058

REACTIONS (3)
  - VOMITING [None]
  - PANCREATITIS [None]
  - NAUSEA [None]
